FAERS Safety Report 23474550 (Version 1)
Quarter: 2024Q1

REPORT INFORMATION
  Report Type: Spontaneous
  Country: GB (occurrence: GB)
  Receive Date: 20240204
  Receipt Date: 20240204
  Transmission Date: 20240410
  Serious: Yes (Other)
  Sender: FDA-Public Use
  Company Number: GB-KOREA IPSEN Pharma-2023-09533

PATIENT
  Age: 13 Year
  Sex: Female
  Weight: 55 kg

DRUGS (1)
  1. CABOMETYX [Suspect]
     Active Substance: CABOZANTINIB S-MALATE
     Indication: Osteosarcoma
     Dosage: 60 MG DAILY
     Route: 065
     Dates: start: 20230320

REACTIONS (2)
  - Thrombocytopenia [Recovering/Resolving]
  - Palmar-plantar erythrodysaesthesia syndrome [Unknown]

NARRATIVE: CASE EVENT DATE: 20230417
